FAERS Safety Report 5039199-5 (Version None)
Quarter: 2006Q2

REPORT INFORMATION
  Report Type: 
  Country: None (occurrence: None)
  Receive Date: 20060623
  Receipt Date: 20060613
  Transmission Date: 20061013
  Serious: Yes (Disabling, Other)
  Sender: FDA-Public Use
  Company Number: 2005087283

PATIENT
  Sex: Male
  Weight: 74.8435 kg

DRUGS (1)
  1. VIAGRA [Suspect]
     Indication: ERECTILE DYSFUNCTION
     Dates: start: 20020101, end: 20060201

REACTIONS (4)
  - BLINDNESS UNILATERAL [None]
  - GLAUCOMA [None]
  - OPTIC NERVE DISORDER [None]
  - PHARMACEUTICAL PRODUCT COMPLAINT [None]
